FAERS Safety Report 14313359 (Version 1)
Quarter: 2017Q4

REPORT INFORMATION
  Report Type: Spontaneous
  Country: US (occurrence: US)
  Receive Date: 20171221
  Receipt Date: 20171221
  Transmission Date: 20180321
  Serious: No
  Sender: FDA-Public Use
  Company Number: US-IPSEN BIOSCIENCE, INC.-MER-2017-000124

PATIENT

DRUGS (3)
  1. ONIVYDE [Suspect]
     Active Substance: IRINOTECAN HYDROCHLORIDE
     Indication: PANCREATIC CARCINOMA METASTATIC
     Dosage: FDA DOSE, IV INFUSION AND PUMP, Q2WK
     Route: 042
     Dates: start: 20160928
  2. LEUCOVORIN                         /00566701/ [Suspect]
     Active Substance: LEUCOVORIN
     Indication: PANCREATIC CARCINOMA METASTATIC
     Dosage: UNK
     Route: 065
  3. FLUOROURACIL. [Suspect]
     Active Substance: FLUOROURACIL
     Indication: PANCREATIC CARCINOMA METASTATIC
     Dosage: UNK
     Route: 065

REACTIONS (13)
  - Blood magnesium decreased [Unknown]
  - Fatigue [Unknown]
  - Sinus bradycardia [Unknown]
  - Weight decreased [Unknown]
  - Paraesthesia [Unknown]
  - Carbohydrate antigen 19-9 increased [Unknown]
  - Nausea [Unknown]
  - Decreased appetite [Unknown]
  - Heart rate irregular [Unknown]
  - Hypoaesthesia [Unknown]
  - Blood potassium decreased [Unknown]
  - Dehydration [Unknown]
  - Muscular weakness [Unknown]

NARRATIVE: CASE EVENT DATE: 201609
